FAERS Safety Report 13261772 (Version 6)
Quarter: 2017Q2

REPORT INFORMATION
  Report Type: Report from Study
  Country: US (occurrence: US)
  Receive Date: 20170222
  Receipt Date: 20170628
  Transmission Date: 20170830
  Serious: No
  Sender: FDA-Public Use
  Company Number: PHEH2017US005080

PATIENT
  Sex: Male

DRUGS (2)
  1. LENVATINIB [Suspect]
     Active Substance: LENVATINIB
     Indication: RENAL CANCER
     Dosage: 14 MG, QD
     Route: 048
     Dates: start: 20170202, end: 20170524
  2. AFINITOR [Suspect]
     Active Substance: EVEROLIMUS
     Indication: RENAL CELL CARCINOMA
     Dosage: UNK
     Route: 065

REACTIONS (7)
  - Vomiting [Unknown]
  - Blood pressure increased [Unknown]
  - Headache [Unknown]
  - Diarrhoea [Unknown]
  - Nausea [Unknown]
  - Blood magnesium decreased [Unknown]
  - Dry skin [Not Recovered/Not Resolved]
